FAERS Safety Report 14569082 (Version 1)
Quarter: 2018Q1

REPORT INFORMATION
  Report Type: Spontaneous
  Country: US (occurrence: US)
  Receive Date: 20180223
  Receipt Date: 20180223
  Transmission Date: 20180509
  Serious: No
  Sender: FDA-Public Use
  Company Number: None

PATIENT
  Sex: Female
  Weight: 72 kg

DRUGS (2)
  1. CHLORHEXIDINE GLUCONATE .12% RINSE [Suspect]
     Active Substance: CHLORHEXIDINE GLUCONATE
     Indication: ORAL SURGERY
     Dosage: ORAL TWICE A DAY 1 TABLESPOON?
     Route: 048
     Dates: start: 20180220, end: 20180221
  2. CHLORHEXIDINE GLUCONATE .12% RINSE [Suspect]
     Active Substance: CHLORHEXIDINE GLUCONATE
     Indication: TOOTH EXTRACTION
     Dosage: ORAL TWICE A DAY 1 TABLESPOON?
     Route: 048
     Dates: start: 20180220, end: 20180221

REACTIONS (4)
  - Pruritus [None]
  - Rash erythematous [None]
  - Urticaria [None]
  - Feeling hot [None]

NARRATIVE: CASE EVENT DATE: 20180221
